FAERS Safety Report 4811499-0 (Version None)
Quarter: 2005Q4

REPORT INFORMATION
  Report Type: 
  Country: None (occurrence: None)
  Receive Date: 20051027
  Receipt Date: 20051001
  Transmission Date: 20060501
  Serious: Yes (Hospitalization)
  Sender: FDA-Public Use
  Company Number: US-ABBOTT-05P-163-0312792-00

PATIENT
  Sex: Female
  Weight: 60.836 kg

DRUGS (1)
  1. HUMIRA 40 MG/ 0.8 ML PRE-FILLED SYRINGE [Suspect]
     Indication: RHEUMATOID ARTHRITIS
     Route: 058
     Dates: start: 20050401, end: 20050930

REACTIONS (4)
  - LOCAL SWELLING [None]
  - SKIN LACERATION [None]
  - STAPHYLOCOCCAL INFECTION [None]
  - WOUND [None]
